FAERS Safety Report 9283919 (Version 2)
Quarter: 2016Q1

REPORT INFORMATION
  Report Type: Spontaneous
  Country: US (occurrence: US)
  Receive Date: 20130510
  Receipt Date: 20160110
  Transmission Date: 20160526
  Serious: No
  Sender: FDA-Public Use
  Company Number: US-COVIDIEN/TYCO HEALTHCARE/MALLINCKRODT-T201300969

PATIENT
  Age: 38 Year
  Sex: Male
  Weight: 72.56 kg

DRUGS (3)
  1. CARBON MONOXIDE [Suspect]
     Active Substance: CARBON MONOXIDE
     Dosage: UNK
  2. FENTANYL TRANSDERMAL SYSTEM [Suspect]
     Active Substance: FENTANYL
     Indication: BACK PAIN
     Dosage: 50 MCG/HR, Q 3 DAYS
     Route: 062
     Dates: start: 201302, end: 201302
  3. OXYCODONE [Concomitant]
     Active Substance: OXYCODONE
     Dosage: 30 MG, UP TO 4X/DAY
     Dates: end: 201302

REACTIONS (9)
  - Headache [Recovered/Resolved]
  - Hot flush [Unknown]
  - Incorrect drug administration duration [Unknown]
  - Application site erythema [Recovering/Resolving]
  - Nausea [Unknown]
  - Application site pruritus [Recovered/Resolved]
  - Application site irritation [Recovering/Resolving]
  - Hyperhidrosis [Unknown]
  - Wrong technique in product usage process [Unknown]

NARRATIVE: CASE EVENT DATE: 201302
